FAERS Safety Report 9012613 (Version 1)
Quarter: 2013Q1

REPORT INFORMATION
  Report Type: Report from Study
  Country: US (occurrence: US)
  Receive Date: 20130114
  Receipt Date: 20130114
  Transmission Date: 20140127
  Serious: Yes (Hospitalization)
  Sender: FDA-Public Use
  Company Number: US-ABBOTT-13P-163-1034399-00

PATIENT
  Age: 60 Year
  Sex: Male
  Weight: 74.91 kg

DRUGS (4)
  1. HUMIRA [Suspect]
     Indication: RHEUMATOID ARTHRITIS
     Dates: start: 2008
  2. UNKNOWN PAIN MEDICATION [Concomitant]
     Indication: PAIN
  3. TRAZODONE [Concomitant]
     Indication: DEPRESSION
  4. CLONAZEPAM [Concomitant]
     Indication: ANXIETY

REACTIONS (1)
  - Spinal fusion surgery [Recovered/Resolved]
